FAERS Safety Report 12323575 (Version 3)
Quarter: 2016Q3

REPORT INFORMATION
  Report Type: Spontaneous
  Country: US (occurrence: US)
  Receive Date: 20160502
  Receipt Date: 20160729
  Transmission Date: 20161109
  Serious: Yes (Death, Life-Threatening, Hospitalization, Other)
  Sender: FDA-Public Use
  Company Number: US-SEATTLE GENETICS-2016SGN00668

PATIENT

DRUGS (3)
  1. DACARBAZINE. [Suspect]
     Active Substance: DACARBAZINE
     Indication: HODGKIN^S DISEASE
     Dosage: UNK
     Dates: start: 20160415
  2. ADCETRIS [Suspect]
     Active Substance: BRENTUXIMAB VEDOTIN
     Indication: HODGKIN^S DISEASE
     Dosage: 180 MG/24H, UNK
     Route: 065
     Dates: start: 20160415
  3. VINBLASTINE [Suspect]
     Active Substance: VINBLASTINE
     Indication: HODGKIN^S DISEASE
     Dosage: UNK
     Dates: start: 20160415

REACTIONS (11)
  - Diabetic ketoacidosis [Unknown]
  - Cytokine storm [Fatal]
  - Multiple organ dysfunction syndrome [Fatal]
  - Insulin resistance [Fatal]
  - Hyperglycaemia [Fatal]
  - Pain [Unknown]
  - Polyuria [Unknown]
  - Myalgia [Unknown]
  - Distributive shock [Fatal]
  - Polydipsia [Unknown]
  - Fatigue [Unknown]

NARRATIVE: CASE EVENT DATE: 20160415
